FAERS Safety Report 7813848-8 (Version None)
Quarter: 2011Q4

REPORT INFORMATION
  Report Type: 
  Country: None (occurrence: None)
  Receive Date: 20111011
  Receipt Date: 20110928
  Transmission Date: 20120403
  Serious: Yes (Other)
  Sender: FDA-Public Use
  Company Number: 2011SP046472

PATIENT
  Sex: Female

DRUGS (2)
  1. TYLENOL-500 [Suspect]
     Indication: PRODUCT USED FOR UNKNOWN INDICATION
     Dosage: UNK; PO
     Route: 048
  2. CLARITIN [Suspect]
     Dosage: 10 MG;UNK;PO
     Route: 048

REACTIONS (3)
  - PALPITATIONS [None]
  - HOT FLUSH [None]
  - THROAT TIGHTNESS [None]
